FAERS Safety Report 10869146 (Version 2)
Quarter: 2015Q1

REPORT INFORMATION
  Report Type: Spontaneous
  Country: CH (occurrence: CH)
  Receive Date: 20150225
  Receipt Date: 20150312
  Transmission Date: 20150721
  Serious: Yes (Death)
  Sender: FDA-Public Use
  Company Number: CH-TEVA-542524ISR

PATIENT
  Age: 83 Year
  Sex: Male

DRUGS (3)
  1. METAMIZOL [Interacting]
     Active Substance: METAMIZOLE SODIUM
     Indication: ANALGESIC THERAPY
     Dosage: 2000 MILLIGRAM DAILY;
     Route: 065
  2. METHOTREXATE (METHOTREXATE SODIUM) [Suspect]
     Active Substance: METHOTREXATE SODIUM
     Indication: RHEUMATOID ARTHRITIS
     Dosage: LONGTERM
     Route: 065
  3. PREDNISON [Concomitant]
     Active Substance: PREDNISONE
     Indication: RHEUMATOID ARTHRITIS
     Dosage: 10 MILLIGRAM DAILY; LONGTERM
     Route: 065

REACTIONS (6)
  - C-reactive protein increased [Fatal]
  - Oropharyngeal pain [Fatal]
  - Agranulocytosis [Fatal]
  - Pyrexia [Fatal]
  - Drug interaction [Fatal]
  - Pneumonia aspiration [Fatal]
